FAERS Safety Report 21433490 (Version 2)
Quarter: 2023Q1

REPORT INFORMATION
  Report Type: Report from Study
  Country: US (occurrence: US)
  Receive Date: 20221010
  Receipt Date: 20230206
  Transmission Date: 20230418
  Serious: No
  Sender: FDA-Public Use
  Company Number: US-ABBVIE-4146108

PATIENT
  Age: 73 Year
  Sex: Male

DRUGS (2)
  1. DUOPA [Suspect]
     Active Substance: CARBIDOPA\LEVODOPA
     Indication: Product used for unknown indication
     Route: 050
     Dates: start: 20171012
  2. DUOPA [Suspect]
     Active Substance: CARBIDOPA\LEVODOPA
     Route: 050

REACTIONS (15)
  - Diaphragmatic hernia [Unknown]
  - Large intestine polyp [Unknown]
  - Peripheral swelling [Unknown]
  - Stoma site haemorrhage [Unknown]
  - Stoma site pain [Unknown]
  - Stoma site discharge [Unknown]
  - Chest pain [Unknown]
  - On and off phenomenon [Unknown]
  - Device dislocation [Unknown]
  - Dyspnoea [Unknown]
  - Nerve injury [Unknown]
  - Freezing phenomenon [Unknown]
  - Abdominal pain upper [Unknown]
  - Flatulence [Unknown]
  - Walking aid user [Unknown]

NARRATIVE: CASE EVENT DATE: 20230101
